FAERS Safety Report 17864702 (Version 2)
Quarter: 2020Q2

REPORT INFORMATION
  Report Type: Spontaneous
  Country: US (occurrence: US)
  Receive Date: 20200605
  Receipt Date: 20200622
  Transmission Date: 20200714
  Serious: Yes (Hospitalization, Other)
  Sender: FDA-Public Use
  Company Number: US-MEDEXUS PHARMA, INC.-2020MED00140

PATIENT
  Age: 67 Year
  Sex: Female
  Weight: 63.49 kg

DRUGS (9)
  1. RASUVO [Suspect]
     Active Substance: METHOTREXATE SODIUM
     Dosage: 20 MG, 1X/WEEK ON WEDNESDAYS INJECTED INTO TOP OF HER LEG, ALTERNATING LEFT AND RIGHT SIDES
  2. LEVOXYL [Concomitant]
     Active Substance: LEVOTHYROXINE SODIUM
  3. ACTEMRA [Concomitant]
     Active Substance: TOCILIZUMAB
  4. VITAMIN D [Concomitant]
     Active Substance: VITAMIN D NOS
  5. RASUVO [Suspect]
     Active Substance: METHOTREXATE SODIUM
     Indication: RHEUMATOID ARTHRITIS
     Dosage: 20 MG, 1X/WEEK ON WEDNESDAYS INJECTED INTO TOP OF HER LEG, ALTERNATING LEFT AND RIGHT SIDES
  6. RASUVO [Suspect]
     Active Substance: METHOTREXATE SODIUM
     Dosage: 20 MG, 1X/WEEK ON WEDNESDAYS INJECTED INTO TOP OF HER LEG, ALTERNATING LEFT AND RIGHT SIDES
  7. PLAQUENIL [Concomitant]
     Active Substance: HYDROXYCHLOROQUINE SULFATE
  8. CALCIUM [Concomitant]
     Active Substance: CALCIUM
  9. RASUVO [Suspect]
     Active Substance: METHOTREXATE SODIUM
     Dosage: 20 MG, 1X/WEEK ON WEDNESDAYS INJECTED INTO TOP OF HER LEG, ALTERNATING LEFT AND RIGHT SIDES
     Dates: start: 20200520

REACTIONS (11)
  - Blister [Unknown]
  - Post procedural complication [Recovered/Resolved]
  - Osteomyelitis [Recovering/Resolving]
  - Arthropathy [Recovered/Resolved]
  - Plantar fasciitis [Recovered/Resolved]
  - Arthralgia [Recovered/Resolved]
  - Tendon injury [Recovered/Resolved]
  - Pneumonia [Recovered/Resolved]
  - Foot fracture [Recovered/Resolved]
  - Arthritis [Recovered/Resolved]
  - Expired product administered [Recovered/Resolved]

NARRATIVE: CASE EVENT DATE: 201610
